FAERS Safety Report 23471082 (Version 4)
Quarter: 2024Q1

REPORT INFORMATION
  Report Type: Spontaneous
  Country: US (occurrence: US)
  Receive Date: 20240202
  Receipt Date: 20240329
  Transmission Date: 20240409
  Serious: Yes (Hospitalization, Other)
  Sender: FDA-Public Use
  Company Number: US-PFIZER INC-202400030215

PATIENT
  Age: 52 Year
  Sex: Female

DRUGS (1)
  1. ROCURONIUM BROMIDE [Suspect]
     Active Substance: ROCURONIUM BROMIDE
     Dosage: UNK
     Dates: start: 20240116, end: 20240118

REACTIONS (13)
  - Swelling face [Recovering/Resolving]
  - Feeling hot [Recovering/Resolving]
  - Blood pressure decreased [Recovering/Resolving]
  - Urticaria [Recovering/Resolving]
  - Erythema [Recovering/Resolving]
  - Pharyngeal erythema [Recovering/Resolving]
  - Ocular hyperaemia [Recovering/Resolving]
  - Lip erythema [Recovering/Resolving]
  - Pharyngeal swelling [Recovering/Resolving]
  - Eye swelling [Recovering/Resolving]
  - Lip swelling [Recovering/Resolving]
  - Peripheral swelling [Recovering/Resolving]
  - Anaphylactic reaction [Unknown]

NARRATIVE: CASE EVENT DATE: 20240101
